FAERS Safety Report 7789048-7 (Version None)
Quarter: 2011Q3

REPORT INFORMATION
  Report Type: 
  Country: None (occurrence: None)
  Receive Date: 20110930
  Receipt Date: 20110921
  Transmission Date: 20111222
  Serious: Yes (Hospitalization)
  Sender: FDA-Public Use
  Company Number: US-US-EMD SERONO, INC.-7027503

PATIENT
  Sex: Female
  Weight: 47 kg

DRUGS (5)
  1. IMITREX [Concomitant]
     Indication: MIGRAINE
  2. VITAMIN D [Concomitant]
  3. GABAPENTIN [Concomitant]
     Indication: MULTIPLE SCLEROSIS
  4. PROTONIX [Concomitant]
     Indication: GASTRIC DISORDER
  5. REBIF [Suspect]
     Indication: MULTIPLE SCLEROSIS
     Route: 058
     Dates: start: 20030401

REACTIONS (8)
  - MIGRAINE [None]
  - PYREXIA [None]
  - SINUSITIS [None]
  - SARCOIDOSIS [None]
  - POST PROCEDURAL HAEMORRHAGE [None]
  - FEELING ABNORMAL [None]
  - BLOOD POTASSIUM DECREASED [None]
  - FATIGUE [None]
